FAERS Safety Report 19444385 (Version 2)
Quarter: 2021Q3

REPORT INFORMATION
  Report Type: Report from Study
  Country: None (occurrence: US)
  Receive Date: 20210621
  Receipt Date: 20210701
  Transmission Date: 20211014
  Serious: Yes (Hospitalization, Other)
  Sender: FDA-Public Use
  Company Number: US-ABBVIE-21K-163-3957921-00

PATIENT
  Age: 54 Year
  Sex: Female
  Weight: 113.5 kg

DRUGS (21)
  1. INSULIN GLARGINE [Concomitant]
     Active Substance: INSULIN GLARGINE
     Indication: PRODUCT USED FOR UNKNOWN INDICATION
  2. QUETIAPINE FUMARATE. [Concomitant]
     Active Substance: QUETIAPINE FUMARATE
     Indication: AFFECTIVE DISORDER
  3. ATORVASTATIN CALCIUM. [Concomitant]
     Active Substance: ATORVASTATIN CALCIUM
     Indication: BLOOD CHOLESTEROL
  4. HUMALOG [Concomitant]
     Active Substance: INSULIN LISPRO
     Indication: DIABETES MELLITUS
  5. CREON [Suspect]
     Active Substance: PANCRELIPASE AMYLASE\PANCRELIPASE LIPASE\PANCRELIPASE PROTEASE
     Indication: PANCREATIC FAILURE
     Dosage: 1 CAPSULE WITH EACH MEAL AND 1 CAPSULE PER SNACK
     Route: 048
     Dates: start: 202005, end: 20200703
  6. BREO ELLIPTA [Concomitant]
     Active Substance: FLUTICASONE FUROATE\VILANTEROL TRIFENATATE
     Indication: CHRONIC OBSTRUCTIVE PULMONARY DISEASE
  7. GABAPENTIN. [Concomitant]
     Active Substance: GABAPENTIN
     Indication: NEUROPATHY PERIPHERAL
  8. MAXALT [Concomitant]
     Active Substance: RIZATRIPTAN BENZOATE
     Indication: MIGRAINE
  9. BUSPIRONE [Concomitant]
     Active Substance: BUSPIRONE HYDROCHLORIDE
     Indication: ANXIETY
  10. LEVEMIR [Concomitant]
     Active Substance: INSULIN DETEMIR
     Indication: DIABETES MELLITUS
  11. CREON [Suspect]
     Active Substance: PANCRELIPASE AMYLASE\PANCRELIPASE LIPASE\PANCRELIPASE PROTEASE
     Dosage: 1 CAPSULE WITH EACH MEAL AND 1 CAPSULE PER SNACK
     Route: 048
     Dates: start: 20200814
  12. ALBUTEROL SULFATE. [Concomitant]
     Active Substance: ALBUTEROL SULFATE
     Indication: CHRONIC OBSTRUCTIVE PULMONARY DISEASE
  13. QUETIAPINE FUMARATE. [Concomitant]
     Active Substance: QUETIAPINE FUMARATE
     Indication: SLEEP DISORDER
  14. ZOFRAN [Concomitant]
     Active Substance: ONDANSETRON HYDROCHLORIDE
     Indication: MIGRAINE
  15. BUSPIRONE [Concomitant]
     Active Substance: BUSPIRONE HYDROCHLORIDE
     Indication: PANIC REACTION
  16. CHOLECALCIFEROL [Concomitant]
     Active Substance: CHOLECALCIFEROL
     Indication: PRODUCT USED FOR UNKNOWN INDICATION
  17. METOPROLOL TARTRATE. [Concomitant]
     Active Substance: METOPROLOL TARTRATE
     Indication: HYPERTENSION
  18. CETIRIZINE HCL [Concomitant]
     Active Substance: CETIRIZINE HYDROCHLORIDE
     Indication: PRODUCT USED FOR UNKNOWN INDICATION
  19. BUSPIRONE [Concomitant]
     Active Substance: BUSPIRONE HYDROCHLORIDE
     Indication: NERVOUS SYSTEM DISORDER
  20. TOPAMAX [Concomitant]
     Active Substance: TOPIRAMATE
     Indication: MIGRAINE
  21. OMEGA?3 ACIDS [Concomitant]
     Active Substance: OMEGA-3 FATTY ACIDS
     Indication: SUPPLEMENTATION THERAPY

REACTIONS (4)
  - Dyspnoea [Recovering/Resolving]
  - Chronic obstructive pulmonary disease [Recovering/Resolving]
  - Pancreatitis necrotising [Unknown]
  - Pneumonia [Recovering/Resolving]

NARRATIVE: CASE EVENT DATE: 20210607
